FAERS Safety Report 4394239-1 (Version None)
Quarter: 2004Q3

REPORT INFORMATION
  Report Type: 
  Country: None (occurrence: None)
  Receive Date: 20040707
  Receipt Date: 20040707
  Transmission Date: 20050211
  Serious: No
  Sender: FDA-Public Use
  Company Number: None

PATIENT

DRUGS (1)
  1. BARIUM SULFATE (BARO-CAT) SUSP: 300ML [Suspect]
     Indication: COMPUTERISED TOMOGRAM
     Dosage: Q X1 PO
     Route: 048
     Dates: start: 20040620, end: 20040620

REACTIONS (3)
  - ANXIETY [None]
  - ERYTHEMA [None]
  - FEELING ABNORMAL [None]
